FAERS Safety Report 8206520-6 (Version None)
Quarter: 2012Q1

REPORT INFORMATION
  Report Type: 
  Country: None (occurrence: None)
  Receive Date: 20120313
  Receipt Date: 20120308
  Transmission Date: 20120608
  Serious: Yes (Hospitalization, Other)
  Sender: FDA-Public Use
  Company Number: US-AMGEN-USASP2011067069

PATIENT
  Age: 68 Year
  Sex: Female
  Weight: 64.399 kg

DRUGS (17)
  1. LORAZEPAM [Concomitant]
  2. GLIMEPIRIDE [Concomitant]
  3. FLUNISOLIDE [Concomitant]
  4. DOXAZOSIN MESYLATE [Concomitant]
  5. JANUVIA [Concomitant]
  6. PRILOSEC [Concomitant]
  7. NIFEDIPINE [Concomitant]
  8. NOVOLIN 70/30 [Concomitant]
  9. ASPIRIN [Concomitant]
  10. PERCOCET [Concomitant]
  11. FUROSEMIDE [Concomitant]
  12. PRAVASTATIN [Concomitant]
  13. VITAMIN D [Concomitant]
  14. SYNTHROID [Concomitant]
  15. PROLIA [Suspect]
     Indication: OSTEOPOROSIS POSTMENOPAUSAL
     Dosage: 60 MG, Q6MO
     Route: 058
     Dates: start: 20110608, end: 20111001
  16. VASOTEC [Concomitant]
  17. TENORMIN [Concomitant]

REACTIONS (3)
  - FEMUR FRACTURE [None]
  - IMPAIRED HEALING [None]
  - FALL [None]
